FAERS Safety Report 4532350-2 (Version None)
Quarter: 2004Q4

REPORT INFORMATION
  Report Type: 
  Country: None (occurrence: None)
  Receive Date: 20041217
  Receipt Date: 20041207
  Transmission Date: 20050328
  Serious: Yes (Other)
  Sender: FDA-Public Use
  Company Number: 2004108160

PATIENT

DRUGS (1)
  1. ZYRTEC-D 12 HOUR [Suspect]
     Indication: ILL-DEFINED DISORDER

REACTIONS (2)
  - STOOL ANALYSIS ABNORMAL [None]
  - SURGERY [None]
